FAERS Safety Report 25651977 (Version 4)
Quarter: 2025Q4

REPORT INFORMATION
  Report Type: Spontaneous
  Country: BR (occurrence: BR)
  Receive Date: 20250806
  Receipt Date: 20251003
  Transmission Date: 20260118
  Serious: Yes (Disabling)
  Sender: BOEHRINGER INGELHEIM
  Company Number: BR-Komodo Health-a23aa000009FEVJAA4

PATIENT
  Age: 63 Year
  Sex: Female
  Weight: 50 kg

DRUGS (2)
  1. GLYXAMBI [Suspect]
     Active Substance: EMPAGLIFLOZIN\LINAGLIPTIN
     Indication: Type 2 diabetes mellitus
     Dosage: FORM STRENGTH: 25/5 MILLIGRAMS.?AT NIGHT
     Dates: start: 2024
  2. GLICLAZIDE [Concomitant]
     Active Substance: GLICLAZIDE
     Indication: Type 2 diabetes mellitus
     Dosage: DIAMICRON (GLICLAZIDE) (IN THE MORNING, ON AN EMPTY STOMACH)

REACTIONS (8)
  - Vision blurred [Recovered/Resolved]
  - Cataract [Recovered/Resolved]
  - Product complaint [Not Recovered/Not Resolved]
  - Drug ineffective [Not Recovered/Not Resolved]
  - Blood glucose increased [Not Recovered/Not Resolved]
  - Neck pain [Not Recovered/Not Resolved]
  - Hypertension [Unknown]
  - Off label use [Unknown]

NARRATIVE: CASE EVENT DATE: 20240901
